FAERS Safety Report 7166730-6 (Version None)
Quarter: 2010Q4

REPORT INFORMATION
  Report Type: 
  Country: None (occurrence: None)
  Receive Date: 20101213
  Receipt Date: 20101213
  Transmission Date: 20110411
  Serious: Yes (Other)
  Sender: FDA-Public Use
  Company Number: None

PATIENT
  Sex: Female
  Weight: 64 kg

DRUGS (3)
  1. BEVACIZUMAB [Suspect]
     Indication: OVARIAN CANCER
     Dosage: 10MG/KG EVERY 2 WEEKS
     Dates: start: 20100317, end: 20101201
  2. GEMCITABINE [Suspect]
     Indication: OVARIAN CANCER
     Dosage: 1000MG/M2 Q2WEEKS IV DRIP
     Route: 041
     Dates: start: 20100317, end: 20101201
  3. CARBOPLATIN [Suspect]
     Indication: OVARIAN CANCER
     Dosage: CARBOPLATIN AUC 3 Q2WEEKS IV DRIP
     Route: 041
     Dates: start: 20100317, end: 20101201

REACTIONS (4)
  - ABDOMINAL PAIN UPPER [None]
  - CHEST PAIN [None]
  - DYSPNOEA [None]
  - EMBOLISM ARTERIAL [None]
